FAERS Safety Report 8405682-5 (Version None)
Quarter: 2012Q2

REPORT INFORMATION
  Report Type: 
  Country: None (occurrence: None)
  Receive Date: 20120604
  Receipt Date: 20120522
  Transmission Date: 20120825
  Serious: No
  Sender: FDA-Public Use
  Company Number: US-BIOGENIDEC-2012BI019409

PATIENT
  Sex: Female

DRUGS (4)
  1. AVONEX [Suspect]
     Indication: MULTIPLE SCLEROSIS
     Route: 030
     Dates: start: 20030410, end: 20080328
  2. ACYCLOVIR [Concomitant]
     Indication: PLATELET COUNT DECREASED
  3. ACYCLOVIR [Concomitant]
     Indication: APLASTIC ANAEMIA
  4. PREDNISONE [Concomitant]
     Indication: MULTIPLE SCLEROSIS

REACTIONS (3)
  - HEADACHE [None]
  - WEIGHT INCREASED [None]
  - MEMORY IMPAIRMENT [None]
